FAERS Safety Report 9315181 (Version 1)
Quarter: 2013Q2

REPORT INFORMATION
  Report Type: Spontaneous
  Country: CA (occurrence: CA)
  Receive Date: 20130529
  Receipt Date: 20130529
  Transmission Date: 20140414
  Serious: Yes (Other)
  Sender: FDA-Public Use
  Company Number: CA-JNJFOC-2005137833

PATIENT
  Sex: Male

DRUGS (2)
  1. IBUPROFEN [Suspect]
     Indication: ARTHRALGIA
     Dosage: DAILY DOSE QTY: 1600 MG
     Route: 048
  2. CELEBREX [Suspect]
     Indication: ARTHRALGIA
     Dosage: DAILY DOSE QTY: 200 MG
     Route: 048
     Dates: end: 2005

REACTIONS (2)
  - Bile duct stent insertion [Recovered/Resolved]
  - Blood alkaline phosphatase increased [Not Recovered/Not Resolved]
